FAERS Safety Report 9152761 (Version 2)
Quarter: 2013Q1

REPORT INFORMATION
  Report Type: Report from Study
  Country: AT (occurrence: AT)
  Receive Date: 20130308
  Receipt Date: 20130320
  Transmission Date: 20140127
  Serious: Yes (Hospitalization)
  Sender: FDA-Public Use
  Company Number: AT-VERTEX PHARMACEUTICALS INC.-2013-001441

PATIENT
  Age: 55 Year
  Sex: Male
  Weight: 75 kg

DRUGS (8)
  1. VX-950 (TELAPREVIR) [Suspect]
     Indication: PRODUCT USED FOR UNKNOWN INDICATION
     Dosage: 2250 MG, 1 EVERY 8 HOUR
     Route: 048
     Dates: start: 20120904, end: 20121127
  2. RIBAVIRIN [Suspect]
     Indication: PRODUCT USED FOR UNKNOWN INDICATION
     Dosage: DOSE 200 FREQUENCY 1-2
     Route: 048
     Dates: start: 20120904
  3. PEG-INTERFERON [Suspect]
     Indication: PRODUCT USED FOR UNKNOWN INDICATION
     Dosage: DOSAGE FORM: UNSPECIFIED
     Route: 058
     Dates: start: 20120904
  4. DAKTARIN [Concomitant]
     Indication: CHEILITIS
     Dosage: DOSAGE FORM: OINTMENT
     Route: 061
     Dates: start: 20120925
  5. PYRALVEX (ANTRAQUINONE/SALICYLIC ACID) [Concomitant]
     Indication: MOUTH ULCERATION
     Dosage: DOSAGE FORM: UNSPECIFIED, 1.0 DROPS
     Route: 061
     Dates: start: 20121016, end: 20121210
  6. NOVALGIN [Concomitant]
     Indication: PRODUCT USED FOR UNKNOWN INDICATION
     Dosage: DOSAGE FORM: UNSPECIFIED
     Route: 065
     Dates: start: 20121219
  7. AVELOX [Concomitant]
     Indication: PRODUCT USED FOR UNKNOWN INDICATION
     Dosage: 400 MG, QD
     Route: 048
     Dates: start: 20121221
  8. PREVISON [Concomitant]
     Indication: PRODUCT USED FOR UNKNOWN INDICATION
     Dosage: DOSAGE FORM: CREAM
     Route: 065
     Dates: start: 20121016, end: 20121025

REACTIONS (2)
  - Staphylococcal sepsis [Recovered/Resolved]
  - Cholangitis [Unknown]
